FAERS Safety Report 9397842 (Version 3)
Quarter: 2013Q3

REPORT INFORMATION
  Report Type: Spontaneous
  Country: US (occurrence: US)
  Receive Date: 20130712
  Receipt Date: 20130729
  Transmission Date: 20140515
  Serious: No
  Sender: FDA-Public Use
  Company Number: US-009507513-1307USA001075

PATIENT
  Age: 51 Year
  Sex: Female
  Weight: 64.4 kg

DRUGS (2)
  1. CLARITIN-D-12 [Suspect]
     Indication: RESPIRATORY TRACT CONGESTION
     Dosage: 5 MG, BID
     Route: 048
     Dates: start: 20130606, end: 20130610
  2. CLARITIN-D-12 [Suspect]
     Indication: MEDICAL OBSERVATION

REACTIONS (1)
  - Drug ineffective [Unknown]
